FAERS Safety Report 7034363-8 (Version None)
Quarter: 2010Q4

REPORT INFORMATION
  Report Type: 
  Country: None (occurrence: None)
  Receive Date: 20101008
  Receipt Date: 20101004
  Transmission Date: 20110411
  Serious: Yes (Death, Other)
  Sender: FDA-Public Use
  Company Number: PHHY2009CA34944

PATIENT
  Sex: Female

DRUGS (5)
  1. SANDOSTATIN LAR [Suspect]
     Indication: CARCINOID TUMOUR
     Dosage: 20 MG EVERY 4 WEEKS
     Route: 030
     Dates: start: 20090721
  2. SANDOSTATIN LAR [Suspect]
     Dosage: 30 MG, EVERY 4 WEEKS
     Route: 030
  3. SANDOSTATIN LAR [Suspect]
     Dosage: 40 MG, EVERY 4 WEEKS
     Route: 030
  4. SANDOSTATIN LAR [Suspect]
     Dosage: 40 MG, QMO
     Route: 030
     Dates: end: 20100914
  5. CHEMOTHERAPEUTICS NOS [Concomitant]

REACTIONS (24)
  - ABSCESS [None]
  - ASTHENIA [None]
  - BREAST MASS [None]
  - BREAST PAIN [None]
  - DEATH [None]
  - DIARRHOEA [None]
  - DYSPNOEA [None]
  - ERYTHEMA [None]
  - FATIGUE [None]
  - FLUSHING [None]
  - HEPATECTOMY [None]
  - IMPAIRED HEALING [None]
  - INCISION SITE ERYTHEMA [None]
  - INCISION SITE PAIN [None]
  - INSOMNIA [None]
  - MALAISE [None]
  - MALIGNANT NEOPLASM PROGRESSION [None]
  - MASS [None]
  - NAUSEA [None]
  - NEOPLASM [None]
  - NERVOUSNESS [None]
  - OEDEMA PERIPHERAL [None]
  - UPPER EXTREMITY MASS [None]
  - VULVOVAGINAL PRURITUS [None]
